FAERS Safety Report 8234139-X (Version None)
Quarter: 2012Q1

REPORT INFORMATION
  Report Type: 
  Country: None (occurrence: None)
  Receive Date: 20120326
  Receipt Date: 20120314
  Transmission Date: 20120608
  Serious: Yes (Hospitalization)
  Sender: FDA-Public Use
  Company Number: JP-ELI_LILLY_AND_COMPANY-JP201110000053

PATIENT
  Sex: Female

DRUGS (1)
  1. FORTEO [Suspect]
     Dosage: UNK
     Route: 058
     Dates: start: 20110919

REACTIONS (4)
  - HEART RATE INCREASED [None]
  - OSTEOPATHIC TREATMENT [None]
  - INJECTION SITE HAEMATOMA [None]
  - JOINT SURGERY [None]
